FAERS Safety Report 19225806 (Version 2)
Quarter: 2021Q3

REPORT INFORMATION
  Report Type: Spontaneous
  Country: US (occurrence: US)
  Receive Date: 20210506
  Receipt Date: 20210810
  Transmission Date: 20211014
  Serious: No
  Sender: FDA-Public Use
  Company Number: US-PFIZER INC-2021438101

PATIENT
  Age: 10 Year
  Sex: Female

DRUGS (2)
  1. IBRANCE [Suspect]
     Active Substance: PALBOCICLIB
     Indication: OSTEOSARCOMA
     Dosage: 100 MG, CYCLIC [DAILY FOR 14 DOSES, 28 DAY SUPPLY] (14 DAYS AND 7 DAYS OFF)
     Route: 048
     Dates: start: 20210423
  2. IBRANCE [Suspect]
     Active Substance: PALBOCICLIB
     Indication: BONE CANCER
     Dosage: 100 MG, CYCLIC [DAILY FOR 14 DOSES, 28 DAY SUPPLY] (14 DAYS AND 7 DAYS OFF)
     Route: 048

REACTIONS (3)
  - White blood cell count decreased [Unknown]
  - Abdominal pain upper [Unknown]
  - Off label use [Unknown]
